FAERS Safety Report 11753013 (Version 1)
Quarter: 2015Q4

REPORT INFORMATION
  Report Type: Spontaneous
  Country: FR (occurrence: FR)
  Receive Date: 20151119
  Receipt Date: 20151119
  Transmission Date: 20160304
  Serious: Yes (Hospitalization)
  Sender: FDA-Public Use
  Company Number: FR-ACCORD-035462

PATIENT
  Age: 57 Year
  Sex: Female

DRUGS (18)
  1. UROMITEXAN [Suspect]
     Active Substance: MESNA
     Indication: PRODUCT USED FOR UNKNOWN INDICATION
     Dosage: AT DAY 1, DAY 2 AND DAY 3.
     Route: 042
     Dates: start: 20150902, end: 20150905
  2. LEVOTHYROX [Concomitant]
     Active Substance: LEVOTHYROXINE
     Indication: PROPHYLAXIS
     Dosage: DIVIDABLE
     Route: 048
  3. LANSOYL [Concomitant]
     Active Substance: MINERAL OIL
  4. LODOZ [Concomitant]
     Active Substance: BISOPROLOL FUMARATE\HYDROCHLOROTHIAZIDE
     Dosage: 5MG/6.25 MG
     Route: 048
  5. FORLAX [Concomitant]
     Active Substance: POLYETHYLENE GLYCOL 4000
     Dosage: MACROGOL 4000
  6. JAMYLENE [Concomitant]
     Active Substance: DOCUSATE SODIUM
  7. IFOSFAMIDE EG [Suspect]
     Active Substance: IFOSFAMIDE
     Indication: PRODUCT USED FOR UNKNOWN INDICATION
     Dosage: AT DAY 1, DAY 2 AND DAY 3
     Route: 042
     Dates: start: 20150902, end: 20150904
  8. EMEND [Suspect]
     Active Substance: APREPITANT
     Indication: PRODUCT USED FOR UNKNOWN INDICATION
     Dosage: 125 MG DAY1, 80 MG DAY 2 AND DAY 3
     Route: 048
     Dates: start: 20150902, end: 20150904
  9. PARACETAMOL [Concomitant]
     Active Substance: ACETAMINOPHEN
     Route: 042
  10. NORMACOL [Concomitant]
     Active Substance: KARAYA GUM
     Dosage: STERCULIA GUM
  11. ONDANSERTON ACCORD [Suspect]
     Active Substance: ONDANSETRON
     Indication: PRODUCT USED FOR UNKNOWN INDICATION
     Dosage: 2MG/ML
     Route: 042
     Dates: start: 20150902, end: 20150905
  12. ADRIBLASTINE [Suspect]
     Active Substance: DOXORUBICIN
     Indication: PRODUCT USED FOR UNKNOWN INDICATION
     Dosage: AT DAY 1, DAY 2 AND DAY 3
     Route: 042
     Dates: start: 20150902, end: 20150904
  13. FUROSEMIDE RENAUDIN [Suspect]
     Active Substance: FUROSEMIDE
     Indication: PRODUCT USED FOR UNKNOWN INDICATION
     Route: 042
     Dates: start: 20150902, end: 20150904
  14. LOVENOX [Concomitant]
     Active Substance: ENOXAPARIN SODIUM
     Route: 058
  15. PANTOPRAZOLE SODIUM. [Concomitant]
     Active Substance: PANTOPRAZOLE SODIUM
     Indication: PROPHYLAXIS
     Route: 042
     Dates: start: 20150902, end: 20150910
  16. METHYLPREDNISOLONE MYLAN [Concomitant]
     Active Substance: METHYLPREDNISOLONE
     Route: 042
     Dates: start: 20150902, end: 20150910
  17. NEULASTA [Concomitant]
     Active Substance: PEGFILGRASTIM
     Dates: start: 20150906
  18. EDUCTYL [Concomitant]
     Active Substance: POTASSIUM BITARTRATE\SODIUM BICARBONATE

REACTIONS (7)
  - Persecutory delusion [None]
  - Agitation [Unknown]
  - Confusional state [Recovered/Resolved]
  - Disorientation [Recovered/Resolved]
  - Hallucination [Unknown]
  - Encephalopathy [Recovered/Resolved]
  - Toxic encephalopathy [None]

NARRATIVE: CASE EVENT DATE: 20150905
